FAERS Safety Report 17107059 (Version 1)
Quarter: 2019Q4

REPORT INFORMATION
  Report Type: Spontaneous
  Country: IT (occurrence: GB)
  Receive Date: 20191203
  Receipt Date: 20191203
  Transmission Date: 20200122
  Serious: Yes (Disabling)
  Sender: FDA-Public Use
  Company Number: IT-SUNOVION-2019SUN005294

PATIENT

DRUGS (2)
  1. LATUDA [Suspect]
     Active Substance: LURASIDONE HYDROCHLORIDE
     Indication: PRODUCT USED FOR UNKNOWN INDICATION
     Dosage: 37MG AND 74 MG
     Route: 048
     Dates: start: 20190829
  2. QUETIAPINE. [Concomitant]
     Active Substance: QUETIAPINE
     Dosage: REDUCED TO 300MG NOCTE, FURTHER REDUCTION TO 200MG IN 2

REACTIONS (4)
  - Tremor [Unknown]
  - Anxiety [Not Recovered/Not Resolved]
  - Panic disorder [Unknown]
  - Restlessness [Unknown]

NARRATIVE: CASE EVENT DATE: 20190829
